FAERS Safety Report 6534080-4 (Version None)
Quarter: 2010Q1

REPORT INFORMATION
  Report Type: 
  Country: None (occurrence: None)
  Receive Date: 20100112
  Receipt Date: 20100107
  Transmission Date: 20100710
  Serious: Yes (Death)
  Sender: FDA-Public Use
  Company Number: PHEH2010US00527

PATIENT
  Sex: Female

DRUGS (8)
  1. EXJADE [Suspect]
     Indication: IRON OVERLOAD
     Dosage: 1500 MG DAILY
     Route: 048
  2. SIMVASTATIN [Concomitant]
     Dosage: 20 MG, QHS
     Route: 048
  3. AROMASIN [Concomitant]
     Dosage: 25 MG, QD
     Route: 048
  4. TOPROL-XL [Concomitant]
     Dosage: 50 MG, BID
     Route: 048
  5. METFORMIN HYDROCHLORIDE [Concomitant]
     Dosage: 500 MG, BID
  6. GLYBURIDE [Concomitant]
     Dosage: 5 MG, QD
  7. ASPIRIN [Concomitant]
     Dosage: 81 MG, QD
  8. CALCIUM WITH VITAMIN D [Concomitant]

REACTIONS (1)
  - PNEUMONIA [None]
